FAERS Safety Report 7272438-9 (Version None)
Quarter: 2011Q1

REPORT INFORMATION
  Report Type: 
  Country: None (occurrence: None)
  Receive Date: 20110203
  Receipt Date: 20110125
  Transmission Date: 20110831
  Serious: Yes (Other)
  Sender: FDA-Public Use
  Company Number: US-JNJFOC-20101005374

PATIENT
  Sex: Female
  Weight: 81.19 kg

DRUGS (8)
  1. OMEPRAZOLE [Concomitant]
     Indication: NAUSEA
     Route: 065
  2. DIGESTIVE MEDICINE [Concomitant]
  3. FLUOXETINE [Concomitant]
  4. METOPROLOL [Concomitant]
  5. REMICADE [Suspect]
     Indication: CROHN'S DISEASE
     Route: 042
  6. PREDNISONE [Concomitant]
     Indication: CROHN'S DISEASE
  7. HYDROCODONE 5/ACETAMINOPHEN 500 [Concomitant]
     Dosage: 1-2 TABLETS EVERY 4-6 HOURS AS NEEDED
  8. VITAMIN D [Concomitant]

REACTIONS (10)
  - LYMPHADENOPATHY [None]
  - PAIN IN EXTREMITY [None]
  - NAUSEA [None]
  - PAINFUL RESPIRATION [None]
  - DRUG INEFFECTIVE [None]
  - HOT FLUSH [None]
  - WEIGHT INCREASED [None]
  - NEURALGIA [None]
  - EAR PAIN [None]
  - ARTHRALGIA [None]
